FAERS Safety Report 20864660 (Version 2)
Quarter: 2022Q2

REPORT INFORMATION
  Report Type: Report from Study
  Country: US (occurrence: US)
  Receive Date: 20220524
  Receipt Date: 20220620
  Transmission Date: 20220721
  Serious: Yes (Other)
  Sender: FDA-Public Use
  Company Number: US-ABBVIE-22K-163-4404005-00

PATIENT
  Sex: Male

DRUGS (6)
  1. HUMIRA [Suspect]
     Active Substance: ADALIMUMAB
     Indication: Crohn^s disease
     Route: 058
  2. HUMIRA [Suspect]
     Active Substance: ADALIMUMAB
     Route: 058
  3. PFIZER-BIONTECH COVID-19 VACCINE [Concomitant]
     Active Substance: TOZINAMERAN
     Indication: COVID-19 immunisation
     Dosage: FIRST DOSE
     Route: 030
     Dates: start: 20210206, end: 20210206
  4. PFIZER-BIONTECH COVID-19 VACCINE [Concomitant]
     Active Substance: TOZINAMERAN
     Dosage: SECOND DOSE
     Route: 030
     Dates: start: 20210316, end: 20210316
  5. PFIZER-BIONTECH COVID-19 VACCINE [Concomitant]
     Active Substance: TOZINAMERAN
     Dosage: BOOSTER DOSE
     Route: 030
     Dates: start: 20220520, end: 20220520
  6. ASACOL [Concomitant]
     Active Substance: MESALAMINE
     Indication: Product used for unknown indication

REACTIONS (8)
  - Fistula [Not Recovered/Not Resolved]
  - Large intestinal haemorrhage [Not Recovered/Not Resolved]
  - Cataract [Not Recovered/Not Resolved]
  - Colonic fistula [Not Recovered/Not Resolved]
  - Pancreatic cyst [Not Recovered/Not Resolved]
  - Hepatic lesion [Not Recovered/Not Resolved]
  - Unevaluable event [Not Recovered/Not Resolved]
  - Drug ineffective [Unknown]
